FAERS Safety Report 23998403 (Version 1)
Quarter: 2024Q2

REPORT INFORMATION
  Report Type: Spontaneous
  Country: JP (occurrence: JP)
  Receive Date: 20240621
  Receipt Date: 20240621
  Transmission Date: 20240716
  Serious: Yes (Hospitalization)
  Sender: FDA-Public Use
  Company Number: JP-AZURITY PHARMACEUTICALS, INC.-JP-2024AZR000754

PATIENT
  Age: 60 Year
  Sex: Male

DRUGS (1)
  1. CARMUSTINE [Suspect]
     Active Substance: CARMUSTINE
     Indication: Glioblastoma
     Dosage: (7.7 MILLIGRAM(S), 1 IN 8 TOTAL)
     Route: 018

REACTIONS (1)
  - Meningitis eosinophilic [Recovered/Resolved]
